FAERS Safety Report 15028386 (Version 5)
Quarter: 2018Q3

REPORT INFORMATION
  Report Type: Report from Study
  Country: FR (occurrence: FR)
  Receive Date: 20180619
  Receipt Date: 20180903
  Transmission Date: 20181010
  Serious: Yes (Death, Hospitalization, Other)
  Sender: FDA-Public Use
  Company Number: FR-PFIZER INC-2018168961

PATIENT
  Age: 48 Year
  Sex: Female

DRUGS (6)
  1. IRINOTECAN HCL [Suspect]
     Active Substance: IRINOTECAN HYDROCHLORIDE
     Indication: COLORECTAL CANCER METASTATIC
     Dosage: 200 MG, CYCLIC
     Route: 041
     Dates: start: 20151002, end: 20151002
  2. LEVOLEUCOVORIN CALCIUM. [Suspect]
     Active Substance: LEVOLEUCOVORIN CALCIUM
     Indication: COLORECTAL CANCER METASTATIC
     Dosage: 282 MG, CYCLIC
     Route: 041
     Dates: start: 20151002, end: 20151002
  3. POLYSILANE /00159501/ [Concomitant]
     Dosage: UNK
     Route: 065
     Dates: start: 20151002
  4. FLUOROURACIL. [Suspect]
     Active Substance: FLUOROURACIL
     Indication: COLORECTAL CANCER METASTATIC
     Dosage: 1700 MG, CYCLIC
     Route: 041
     Dates: start: 20151002, end: 20151002
  5. FLUOROURACIL. [Suspect]
     Active Substance: FLUOROURACIL
     Dosage: 560 MG, CYCLIC
     Route: 040
     Dates: start: 20151002, end: 20151002
  6. PRIMPERAN [Concomitant]
     Active Substance: METOCLOPRAMIDE HYDROCHLORIDE
     Dosage: UNK

REACTIONS (9)
  - Melaena [Recovered/Resolved]
  - Vomiting [Recovered/Resolved]
  - Diarrhoea [Recovered/Resolved]
  - General physical health deterioration [Not Recovered/Not Resolved]
  - Venoocclusive disease [Fatal]
  - Sepsis [Fatal]
  - Asthenia [Not Recovered/Not Resolved]
  - Oedema peripheral [Not Recovered/Not Resolved]
  - Abdominal pain [Not Recovered/Not Resolved]

NARRATIVE: CASE EVENT DATE: 20151003
